FAERS Safety Report 8452313-4 (Version None)
Quarter: 2012Q2

REPORT INFORMATION
  Report Type: 
  Country: None (occurrence: None)
  Receive Date: 20120620
  Receipt Date: 20120611
  Transmission Date: 20120825
  Serious: Yes (Other)
  Sender: FDA-Public Use
  Company Number: CA-ELI_LILLY_AND_COMPANY-CA201201002987

PATIENT
  Age: 84 Year
  Sex: Female

DRUGS (13)
  1. COUMADIN [Concomitant]
  2. TADALAFIL [Concomitant]
  3. FORTEO [Suspect]
     Indication: OSTEOPOROSIS
     Dosage: 20 UG, QD
     Route: 058
     Dates: start: 20111130
  4. ADCIRCA [Suspect]
  5. BOSENTAN [Concomitant]
  6. AMITRIPTYLINE HCL [Concomitant]
     Dosage: 10 MG, UNKNOWN
     Route: 047
  7. DIAZEPAM [Concomitant]
  8. XALATAN [Concomitant]
     Route: 047
  9. PREMARIN [Concomitant]
  10. ASPIRIN [Concomitant]
     Dosage: 81 MG, UNK
  11. ATACAND [Concomitant]
  12. FORTEO [Suspect]
     Dosage: 20 UG, QD
     Route: 058
  13. MAXIDEX [Concomitant]
     Indication: EYE DISORDER
     Route: 047

REACTIONS (3)
  - HYPOACUSIS [None]
  - DEAFNESS UNILATERAL [None]
  - OSTEOARTHRITIS [None]
